FAERS Safety Report 22361688 (Version 2)
Quarter: 2023Q2

REPORT INFORMATION
  Report Type: Spontaneous
  Country: FR (occurrence: FR)
  Receive Date: 20230524
  Receipt Date: 20230604
  Transmission Date: 20230722
  Serious: Yes (Other)
  Sender: FDA-Public Use
  Company Number: FR-TEVA-2023-FR-2889801

PATIENT
  Age: 11 Year
  Sex: Male

DRUGS (4)
  1. METHOTREXATE [Suspect]
     Active Substance: METHOTREXATE
     Indication: Hepatosplenic T-cell lymphoma
     Dosage: RECEIVED 2 COURSES UNDER IVAM THERAPY
     Route: 065
  2. ETOPOSIDE [Concomitant]
     Active Substance: ETOPOSIDE
     Indication: Hepatosplenic T-cell lymphoma
     Dosage: RECEIVED 2 COURSES UNDER IVAM THERAPY
     Route: 065
  3. IFOSFAMIDE [Concomitant]
     Active Substance: IFOSFAMIDE
     Indication: Hepatosplenic T-cell lymphoma
     Dosage: RECEIVED 2 COURSES UNDER IVAM THERAPY
     Route: 065
  4. CYTARABINE [Concomitant]
     Active Substance: CYTARABINE
     Indication: Hepatosplenic T-cell lymphoma
     Dosage: RECEIVED 2 COURSES UNDER IVAM THERAPY
     Route: 065

REACTIONS (1)
  - Toxic encephalopathy [Unknown]
